FAERS Safety Report 8128466-4 (Version None)
Quarter: 2012Q1

REPORT INFORMATION
  Report Type: 
  Country: None (occurrence: None)
  Receive Date: 20120210
  Receipt Date: 20120131
  Transmission Date: 20120608
  Serious: Yes (Other)
  Sender: FDA-Public Use
  Company Number: JP-ROCHE-1038342

PATIENT
  Sex: Male

DRUGS (2)
  1. MOXIFLOXACIN HYDROCHLORIDE [Concomitant]
     Dates: start: 20090401, end: 20100301
  2. RANIBIZUMAB [Suspect]
     Indication: AGE-RELATED MACULAR DEGENERATION
     Route: 050
     Dates: start: 20090414

REACTIONS (1)
  - OESOPHAGEAL CARCINOMA [None]
